FAERS Safety Report 23057624 (Version 8)
Quarter: 2023Q4

REPORT INFORMATION
  Report Type: Report from Study
  Country: US (occurrence: US)
  Receive Date: 20231012
  Receipt Date: 20231222
  Transmission Date: 20240110
  Serious: Yes (Hospitalization, Other)
  Sender: FDA-Public Use
  Company Number: US-KOREA IPSEN Pharma-2023-22119

PATIENT
  Age: 76 Year
  Sex: Female
  Weight: 51.79 kg

DRUGS (20)
  1. TAZVERIK [Suspect]
     Active Substance: TAZEMETOSTAT HYDROBROMIDE
     Indication: Follicular lymphoma
     Dosage: 800 MG, TWICE DAILY
     Route: 048
     Dates: start: 20230911
  2. TAZVERIK [Suspect]
     Active Substance: TAZEMETOSTAT HYDROBROMIDE
     Dosage: 400 MG, TWICE DAILY
     Route: 048
     Dates: start: 20230911, end: 202310
  3. TAZVERIK [Suspect]
     Active Substance: TAZEMETOSTAT HYDROBROMIDE
     Dosage: 1 TAB DAILY FOR 1 WEEK THEN 1 TAB TWICE DAILY
     Route: 048
     Dates: start: 20230911
  4. TAZVERIK [Suspect]
     Active Substance: TAZEMETOSTAT HYDROBROMIDE
     Dosage: 1 TAB DAILY FOR 1 WEEK THEN 1 TAB TWICE DAILY
     Route: 048
     Dates: start: 20230911
  5. TAZVERIK [Suspect]
     Active Substance: TAZEMETOSTAT HYDROBROMIDE
     Dosage: TWICE DAILY
     Route: 048
     Dates: start: 202308
  6. ALENDRONATE [Concomitant]
     Active Substance: ALENDRONATE SODIUM
  7. VITAMIN B12 [Concomitant]
     Active Substance: CYANOCOBALAMIN
  8. ELIQUIS [Concomitant]
     Active Substance: APIXABAN
  9. FAMOTIDINE [Concomitant]
     Active Substance: FAMOTIDINE
  10. LETROZOLE [Concomitant]
     Active Substance: LETROZOLE
  11. METOPROLOL [Concomitant]
     Active Substance: METOPROLOL
  12. VITAMIN D3 [Concomitant]
     Active Substance: CHOLECALCIFEROL
     Route: 048
  13. TRAMADOL [Concomitant]
     Active Substance: TRAMADOL\TRAMADOL HYDROCHLORIDE
     Route: 048
  14. TYLENOL [Concomitant]
     Active Substance: ACETAMINOPHEN
     Route: 048
  15. BENADRYL [Concomitant]
     Active Substance: DIPHENHYDRAMINE HYDROCHLORIDE
     Route: 048
  16. AMIODARONE [Concomitant]
     Active Substance: AMIODARONE
  17. OXYGEN [Concomitant]
     Active Substance: OXYGEN
  18. LOSARTAN [Concomitant]
     Active Substance: LOSARTAN
  19. DEXAMETHASONE [Concomitant]
     Active Substance: DEXAMETHASONE
  20. MODERNA COVID-19 [Concomitant]

REACTIONS (19)
  - Heart rate increased [Unknown]
  - Renal impairment [Unknown]
  - Haemoglobin decreased [Unknown]
  - COVID-19 [Recovering/Resolving]
  - Pneumonia [Recovering/Resolving]
  - Atrial fibrillation [Unknown]
  - Cardiac disorder [Unknown]
  - Decreased appetite [Not Recovered/Not Resolved]
  - Fatigue [Not Recovered/Not Resolved]
  - Epistaxis [Recovered/Resolved]
  - Cough [Not Recovered/Not Resolved]
  - Rhinorrhoea [Not Recovered/Not Resolved]
  - Contusion [Not Recovered/Not Resolved]
  - Malaise [Not Recovered/Not Resolved]
  - Nausea [Not Recovered/Not Resolved]
  - Vomiting [Not Recovered/Not Resolved]
  - Full blood count abnormal [Unknown]
  - Bone pain [Not Recovered/Not Resolved]
  - Asthenia [Not Recovered/Not Resolved]

NARRATIVE: CASE EVENT DATE: 20230901
